FAERS Safety Report 10054859 (Version 1)
Quarter: 2014Q2

REPORT INFORMATION
  Report Type: Spontaneous
  Country: JP (occurrence: JP)
  Receive Date: 20140402
  Receipt Date: 20140402
  Transmission Date: 20141212
  Serious: Yes (Life-Threatening, Hospitalization, Other)
  Sender: FDA-Public Use
  Company Number: JP-PFIZER INC-2014088662

PATIENT
  Age: 51 Year
  Sex: Male

DRUGS (5)
  1. SUNITINIB MALATE [Suspect]
     Indication: METASTATIC RENAL CELL CARCINOMA
     Dosage: 37.5 MG, DAILY (ON A 2/1 SCHEDULE)
  2. SUNITINIB MALATE [Suspect]
     Dosage: 25 MG, DAILY
  3. SUNITINIB MALATE [Suspect]
     Dosage: 450 MG, SINGLE
  4. BETAMETHASONE [Suspect]
     Indication: METASTATIC RENAL CELL CARCINOMA
     Dosage: UNK
  5. BROTIZOLAM [Suspect]
     Dosage: 14 MG, SINGLE

REACTIONS (5)
  - Overdose [Unknown]
  - Suicide attempt [Unknown]
  - Sepsis [Recovered/Resolved]
  - Neutropenia [Unknown]
  - Thrombocytopenia [Unknown]
